FAERS Safety Report 6569591-9 (Version None)
Quarter: 2010Q1

REPORT INFORMATION
  Report Type: 
  Country: None (occurrence: None)
  Receive Date: 20100204
  Receipt Date: 20100201
  Transmission Date: 20100710
  Serious: Yes (Other)
  Sender: FDA-Public Use
  Company Number: CH-ASTRAZENECA-2010SE04560

PATIENT
  Age: 19653 Day
  Sex: Female

DRUGS (11)
  1. FULVESTRANT [Suspect]
     Indication: BREAST CANCER
     Route: 042
     Dates: start: 20090514, end: 20091029
  2. FULVESTRANT [Suspect]
     Indication: NEOPLASM
     Route: 042
     Dates: start: 20090514, end: 20091029
  3. AMG479 CODE NOT BROKEN [Suspect]
     Indication: BREAST CANCER
     Dosage: EVERY TWO WEEKS
     Route: 042
     Dates: start: 20090514, end: 20091029
  4. AMG479 CODE NOT BROKEN [Suspect]
     Indication: NEOPLASM
     Dosage: EVERY TWO WEEKS
     Route: 042
     Dates: start: 20090514, end: 20091029
  5. FEMARA [Concomitant]
     Route: 065
     Dates: start: 20030316
  6. ZOMETA [Concomitant]
     Route: 042
     Dates: start: 20080609
  7. FRAXIFORTE [Concomitant]
     Route: 058
     Dates: start: 20080825
  8. CALCIMAGON [Concomitant]
     Route: 048
     Dates: start: 20081124
  9. SPIRIVA [Concomitant]
     Route: 055
     Dates: start: 20090515
  10. CHONDROSULF [Concomitant]
     Route: 048
     Dates: start: 20090917
  11. VERRUMAL [Concomitant]
     Route: 065

REACTIONS (1)
  - HEPATIC FUNCTION ABNORMAL [None]
